FAERS Safety Report 6607044-X (Version None)
Quarter: 2010Q1

REPORT INFORMATION
  Report Type: 
  Country: None (occurrence: None)
  Receive Date: 20100219
  Receipt Date: 20100208
  Transmission Date: 20100710
  Serious: Yes (Hospitalization)
  Sender: FDA-Public Use
  Company Number: TRP_06762_2010

PATIENT
  Age: 54 Year
  Sex: Male

DRUGS (3)
  1. INFERGEN [Suspect]
     Indication: DRUG USE FOR UNKNOWN INDICATION
     Dosage: (DF)
     Dates: end: 20100125
  2. RIBAVIRIN [Suspect]
     Indication: DRUG USE FOR UNKNOWN INDICATION
     Dosage: (DF)
  3. ANTIHYPERTENSIVES [Suspect]
     Indication: HYPERTENSION
     Dosage: (DF)

REACTIONS (2)
  - HYPERTENSIVE ENCEPHALOPATHY [None]
  - TREATMENT NONCOMPLIANCE [None]
